FAERS Safety Report 7646295-2 (Version None)
Quarter: 2011Q3

REPORT INFORMATION
  Report Type: 
  Country: None (occurrence: None)
  Receive Date: 20110801
  Receipt Date: 20110718
  Transmission Date: 20111222
  Serious: Yes (Disabling, Other)
  Sender: FDA-Public Use
  Company Number: US-PAR PHARMACEUTICAL, INC-2011SCPR003114

PATIENT

DRUGS (1)
  1. MINOCYCLINE HCL [Suspect]
     Indication: ACNE
     Dosage: 100 MG/DAY
     Route: 065

REACTIONS (2)
  - SCIATIC NERVE NEUROPATHY [None]
  - VASCULITIS NECROTISING [None]
